FAERS Safety Report 5888651-9 (Version None)
Quarter: 2008Q3

REPORT INFORMATION
  Report Type: 
  Country: None (occurrence: None)
  Receive Date: 20080918
  Receipt Date: 20080910
  Transmission Date: 20090109
  Serious: Yes (Other)
  Sender: FDA-Public Use
  Company Number: JP-MERCK-0809USA01838M

PATIENT
  Age: 31 Year
  Sex: Female

DRUGS (5)
  1. ALDOMET [Suspect]
     Indication: HYPERTENSION
     Route: 048
  2. ALDOMET [Suspect]
     Route: 048
  3. HORMONES (UNSPECIFIED) [Concomitant]
     Route: 048
  4. HORMONES (UNSPECIFIED) [Concomitant]
     Route: 048
  5. [THERAPY UNSPECIFIED] [Concomitant]
     Indication: HYPERTENSION
     Route: 048

REACTIONS (5)
  - BLOOD PRESSURE INADEQUATELY CONTROLLED [None]
  - DRUG EXPOSURE DURING PREGNANCY [None]
  - HYPERTENSIVE NEPHROPATHY [None]
  - IGA NEPHROPATHY [None]
  - RENAL IMPAIRMENT [None]
